FAERS Safety Report 5644252-9 (Version None)
Quarter: 2008Q1

REPORT INFORMATION
  Report Type: 
  Country: None (occurrence: None)
  Receive Date: 20080229
  Receipt Date: 20080218
  Transmission Date: 20080703
  Serious: Yes (Hospitalization)
  Sender: FDA-Public Use
  Company Number: US-KINGPHARMUSA00001-K200800218

PATIENT

DRUGS (2)
  1. EPIPEN [Suspect]
     Indication: HYPERSENSITIVITY
     Dosage: .3 MG, SINGLE
     Route: 030
  2. ASPIRIN [Concomitant]

REACTIONS (2)
  - HYPOTENSION [None]
  - TACHYCARDIA [None]
